FAERS Safety Report 18001877 (Version 2)
Quarter: 2020Q3

REPORT INFORMATION
  Report Type: Spontaneous
  Country: US (occurrence: US)
  Receive Date: 20200709
  Receipt Date: 20200901
  Transmission Date: 20201103
  Serious: No
  Sender: FDA-Public Use
  Company Number: US-PFIZER INC-2020259188

PATIENT
  Age: 11 Year
  Sex: Female
  Weight: 29.48 kg

DRUGS (2)
  1. GENOTROPIN [Suspect]
     Active Substance: SOMATROPIN
     Indication: TURNER^S SYNDROME
     Dosage: 1.4 MG (INJECTIONS 6 DAYS A WEEK)
     Dates: start: 202005
  2. SYNTHROID [Concomitant]
     Active Substance: LEVOTHYROXINE SODIUM
     Dosage: UNK

REACTIONS (5)
  - Injection site haemorrhage [Unknown]
  - Injection site pain [Unknown]
  - Incorrect dose administered [Not Recovered/Not Resolved]
  - Device issue [Unknown]
  - Injection site extravasation [Unknown]

NARRATIVE: CASE EVENT DATE: 2020
